FAERS Safety Report 9089540 (Version 1)
Quarter: 2013Q1

REPORT INFORMATION
  Report Type: Report from Study
  Country: US (occurrence: US)
  Receive Date: 20130218
  Receipt Date: 20130218
  Transmission Date: 20140127
  Serious: No
  Sender: FDA-Public Use
  Company Number: US-ABBOTT-12P-163-0925354-00

PATIENT
  Sex: Male
  Weight: 75.82 kg

DRUGS (3)
  1. SIMCOR 750MG/20MG [Suspect]
     Indication: LOW DENSITY LIPOPROTEIN INCREASED
     Dosage: 750/20MG, 2 TABS AT BEDTIME
     Dates: start: 201104, end: 201112
  2. SIMCOR 750MG/20MG [Suspect]
     Indication: HIGH DENSITY LIPOPROTEIN DECREASED
     Dates: start: 201203
  3. ASPIRIN [Concomitant]
     Indication: PRODUCT USED FOR UNKNOWN INDICATION

REACTIONS (3)
  - Flushing [Not Recovered/Not Resolved]
  - Paraesthesia [Not Recovered/Not Resolved]
  - Erythema [Not Recovered/Not Resolved]
